FAERS Safety Report 12557445 (Version 1)
Quarter: 2016Q3

REPORT INFORMATION
  Report Type: Spontaneous
  Country: CH (occurrence: CH)
  Receive Date: 20160714
  Receipt Date: 20160714
  Transmission Date: 20161109
  Serious: Yes (Life-Threatening)
  Sender: FDA-Public Use
  Company Number: PHHY2016CH096115

PATIENT
  Age: 10 Year
  Sex: Male

DRUGS (1)
  1. RITALIN [Suspect]
     Active Substance: METHYLPHENIDATE HYDROCHLORIDE
     Indication: PRODUCT USED FOR UNKNOWN INDICATION
     Dosage: 10 MG, BID (1-0-0, SOMETIMES AT AN ADDITIONAL DOSE OF 1-0-1 (1 TABLET IN THE MORNING, 1 IN EVENING))
     Route: 065

REACTIONS (3)
  - Suicidal ideation [Unknown]
  - Feeling abnormal [Unknown]
  - Intentional self-injury [Unknown]
